FAERS Safety Report 7241886-5 (Version None)
Quarter: 2011Q1

REPORT INFORMATION
  Report Type: 
  Country: None (occurrence: None)
  Receive Date: 20110124
  Receipt Date: 20101221
  Transmission Date: 20110831
  Serious: Yes (Hospitalization)
  Sender: FDA-Public Use
  Company Number: FR-BRISTOL-MYERS SQUIBB COMPANY-15454010

PATIENT
  Age: 82 Year
  Sex: Female

DRUGS (4)
  1. ABATACEPT [Suspect]
     Indication: RHEUMATOID ARTHRITIS
     Route: 042
     Dates: start: 20101207
  2. PREDNISONE [Concomitant]
     Dates: start: 20100706
  3. METOJECT [Suspect]
     Indication: RHEUMATOID ARTHRITIS
     Dates: start: 20100831
  4. FOLIC ACID [Concomitant]
     Dates: start: 20100521

REACTIONS (1)
  - TACHYCARDIA [None]
